FAERS Safety Report 7277498-7 (Version None)
Quarter: 2011Q1

REPORT INFORMATION
  Report Type: 
  Country: None (occurrence: None)
  Receive Date: 20110207
  Receipt Date: 20110125
  Transmission Date: 20110831
  Serious: Yes (Other)
  Sender: FDA-Public Use
  Company Number: US-ELI_LILLY_AND_COMPANY-US201001004825

PATIENT
  Sex: Male

DRUGS (2)
  1. FORTEO [Suspect]
     Dosage: 20 UG, DAILY (1/D)
     Route: 065
  2. FORTEO [Suspect]
     Indication: OSTEOPOROSIS

REACTIONS (3)
  - SURGERY [None]
  - INJURY ASSOCIATED WITH DEVICE [None]
  - INCORRECT STORAGE OF DRUG [None]
